FAERS Safety Report 15058171 (Version 2)
Quarter: 2018Q4

REPORT INFORMATION
  Report Type: Spontaneous
  Country: US (occurrence: US)
  Receive Date: 20180625
  Receipt Date: 20181210
  Transmission Date: 20190204
  Serious: Yes (Life-Threatening, Hospitalization, Other)
  Sender: FDA-Public Use
  Company Number: US-AUROBINDO-AUR-APL-2018-032466

PATIENT
  Age: 42 Year
  Sex: Male

DRUGS (7)
  1. FENTANYL. [Suspect]
     Active Substance: FENTANYL
     Indication: PRODUCT USED FOR UNKNOWN INDICATION
     Dosage: 1000 MICROGRAM
     Route: 065
  2. BUPROPION. [Interacting]
     Active Substance: BUPROPION
     Indication: ATTENTION DEFICIT/HYPERACTIVITY DISORDER
     Dosage: EXTENDED RELEASE (XL)
     Route: 065
  3. FENUGREEK                          /01475701/ [Suspect]
     Active Substance: HERBALS
     Indication: PHYTOTHERAPY
     Dosage: UNK
     Route: 065
  4. PAROXETINE. [Suspect]
     Active Substance: PAROXETINE
     Indication: DEPRESSION
     Dosage: 40 MILLIGRAM, DAILY
     Route: 048
  5. BASIL FES [Suspect]
     Active Substance: BASIL\HERBALS
     Indication: PHYTOTHERAPY
     Dosage: UNK
     Route: 065
  6. PAROXETINE. [Interacting]
     Active Substance: PAROXETINE
     Indication: ANXIETY
  7. PANAX GINSENG ROOT [Interacting]
     Active Substance: ASIAN GINSENG
     Indication: PHYTOTHERAPY
     Dosage: UNK
     Route: 065

REACTIONS (12)
  - Vasodilatation [Recovering/Resolving]
  - Arrhythmia [Recovering/Resolving]
  - Atrial fibrillation [Recovering/Resolving]
  - Pyrexia [Recovering/Resolving]
  - Clonus [Recovering/Resolving]
  - Drug interaction [Recovering/Resolving]
  - Bradycardia [Recovering/Resolving]
  - Herbal interaction [Recovering/Resolving]
  - Ventricular tachycardia [Recovering/Resolving]
  - Serotonin syndrome [Recovering/Resolving]
  - Tachycardia [Recovering/Resolving]
  - Hypotension [Recovering/Resolving]
